FAERS Safety Report 7195143-6 (Version None)
Quarter: 2010Q4

REPORT INFORMATION
  Report Type: 
  Country: None (occurrence: None)
  Receive Date: 20101223
  Receipt Date: 20100926
  Transmission Date: 20110411
  Serious: No
  Sender: FDA-Public Use
  Company Number: US-AMGEN-KDL441265

PATIENT

DRUGS (3)
  1. ENBREL [Suspect]
     Indication: RHEUMATOID ARTHRITIS
     Dosage: 50 MG, QWK
     Route: 058
     Dates: start: 20050315
  2. ENBREL [Suspect]
     Indication: JUVENILE ARTHRITIS
  3. INFLUENZA VACCINE [Concomitant]

REACTIONS (5)
  - FATIGUE [None]
  - PAIN [None]
  - RHEUMATOID ARTHRITIS [None]
  - WOUND [None]
  - WOUND INFECTION STAPHYLOCOCCAL [None]
